FAERS Safety Report 8558331 (Version 2)
Quarter: 2013Q2

REPORT INFORMATION
  Report Type: Spontaneous
  Country: US (occurrence: US)
  Receive Date: 20120511
  Receipt Date: 20130510
  Transmission Date: 20140414
  Serious: No
  Sender: FDA-Public Use
  Company Number: US-GLAXOSMITHKLINE-A0960642A

PATIENT
  Sex: Female

DRUGS (1)
  1. TYKERB [Suspect]
     Indication: PRODUCT USED FOR UNKNOWN INDICATION
     Dosage: 250MG UNKNOWN
     Route: 065

REACTIONS (6)
  - Diarrhoea [Unknown]
  - Rash [Unknown]
  - Pruritus [Unknown]
  - Alopecia [Unknown]
  - Decreased appetite [Unknown]
  - Weight decreased [Unknown]
